FAERS Safety Report 17436453 (Version 1)
Quarter: 2020Q1

REPORT INFORMATION
  Report Type: Spontaneous
  Country: US (occurrence: US)
  Receive Date: 20200219
  Receipt Date: 20200219
  Transmission Date: 20200409
  Serious: Yes (Death, Other)
  Sender: FDA-Public Use
  Company Number: US-LANTHEUS-LMI-2019-00012

PATIENT
  Age: 89 Year
  Sex: Male

DRUGS (1)
  1. DEFINITY [Suspect]
     Active Substance: PERFLUTREN
     Indication: ECHOCARDIOGRAM
     Dosage: 5 ML,  (1.5 ML DEFINITY PREPARED IN 7.5 ML DILUENT)
     Route: 042
     Dates: start: 20190109, end: 20190109

REACTIONS (3)
  - Unresponsive to stimuli [Unknown]
  - Pruritus [Recovered/Resolved]
  - Anaphylactic reaction [Fatal]

NARRATIVE: CASE EVENT DATE: 20190109
